FAERS Safety Report 12522724 (Version 1)
Quarter: 2016Q3

REPORT INFORMATION
  Report Type: Spontaneous
  Country: US (occurrence: US)
  Receive Date: 20160701
  Receipt Date: 20160701
  Transmission Date: 20161109
  Serious: Yes (Other)
  Sender: FDA-Public Use
  Company Number: US-UPSHER-SMITH LABORATORIES, INC.-16001251

PATIENT
  Age: 66 Year
  Sex: Female

DRUGS (2)
  1. XANAX [Concomitant]
     Active Substance: ALPRAZOLAM
     Indication: PANIC ATTACK
     Dosage: UNK, PRN
     Route: 048
  2. FORTICAL [Suspect]
     Active Substance: CALCITONIN SALMON
     Indication: BONE DENSITY DECREASED
     Dosage: 200 IU, QD
     Route: 045
     Dates: start: 2006

REACTIONS (1)
  - Bladder cancer [Not Recovered/Not Resolved]

NARRATIVE: CASE EVENT DATE: 2015
